FAERS Safety Report 4617420-2 (Version None)
Quarter: 2005Q1

REPORT INFORMATION
  Report Type: 
  Country: None (occurrence: None)
  Receive Date: 20050324
  Receipt Date: 20050314
  Transmission Date: 20050727
  Serious: Yes (Other)
  Sender: FDA-Public Use
  Company Number: US-JNJFOC-20050300647

PATIENT
  Sex: Male
  Weight: 81.65 kg

DRUGS (3)
  1. REMICADE [Suspect]
     Indication: RHEUMATOID ARTHRITIS
     Dosage: TOTAL 3 INFUSIONS
     Route: 042
  2. PREDNISONE [Concomitant]
  3. ARAVA [Concomitant]
     Dosage: LAST DOSE

REACTIONS (5)
  - ASTHENIA [None]
  - BRAIN NEOPLASM [None]
  - HEADACHE [None]
  - HYPERSOMNIA [None]
  - HYPERTENSION [None]
